FAERS Safety Report 15030986 (Version 1)
Quarter: 2018Q2

REPORT INFORMATION
  Report Type: Spontaneous
  Country: FR (occurrence: FR)
  Receive Date: 20180619
  Receipt Date: 20180619
  Transmission Date: 20180711
  Serious: Yes (Other)
  Sender: FDA-Public Use
  Company Number: FR-MYLANLABS-2018M1041295

PATIENT
  Age: 58 Year
  Sex: Male
  Weight: 52 kg

DRUGS (5)
  1. LEPTICUR [Interacting]
     Active Substance: TROPATEPINE HYDROCHLORIDE
     Indication: EXTRAPYRAMIDAL DISORDER
     Dosage: 30 MG, QD
     Route: 048
     Dates: start: 20180215
  2. VALIUM [Interacting]
     Active Substance: DIAZEPAM
     Indication: SCHIZOPHRENIA
     Dosage: 120 GTT, QD
     Route: 048
     Dates: start: 20180215
  3. SCOPODERM                          /00008701/ [Interacting]
     Active Substance: SCOPOLAMINE
     Indication: EXTRAPYRAMIDAL DISORDER
     Dosage: 1 MG, Q3D
     Route: 003
     Dates: start: 20180215
  4. OLANZAPINE. [Suspect]
     Active Substance: OLANZAPINE
     Indication: SCHIZOPHRENIA
     Dosage: 20 MG, QD
     Route: 048
     Dates: start: 20171009
  5. LOXAPAC                            /00401801/ [Interacting]
     Active Substance: LOXAPINE
     Indication: SCHIZOPHRENIA
     Dosage: 300 MG, QD
     Route: 048
     Dates: start: 20180214

REACTIONS (2)
  - Drug interaction [Unknown]
  - Constipation [Recovered/Resolved]

NARRATIVE: CASE EVENT DATE: 20180215
